FAERS Safety Report 19352680 (Version 2)
Quarter: 2021Q2

REPORT INFORMATION
  Report Type: Spontaneous
  Country: JP (occurrence: JP)
  Receive Date: 20210601
  Receipt Date: 20210618
  Transmission Date: 20210717
  Serious: Yes (Hospitalization)
  Sender: FDA-Public Use
  Company Number: JP-FERRINGPH-2021FE03247

PATIENT
  Age: 7 Decade
  Sex: Female

DRUGS (2)
  1. MINIRINMELT [Suspect]
     Active Substance: DESMOPRESSIN ACETATE
     Indication: DIABETES INSIPIDUS
     Dosage: 60 UG, 2 TIMES DAILY
     Route: 065
     Dates: start: 2019
  2. CORTRIL [Concomitant]
     Active Substance: HYDROCORTISONE
     Route: 065

REACTIONS (2)
  - Cerebral infarction [Recovered/Resolved]
  - Fall [Unknown]

NARRATIVE: CASE EVENT DATE: 202105
